FAERS Safety Report 9769148 (Version 6)
Quarter: 2015Q2

REPORT INFORMATION
  Report Type: Spontaneous
  Country: US (occurrence: US)
  Receive Date: 20131218
  Receipt Date: 20150625
  Transmission Date: 20150821
  Serious: Yes (Hospitalization, Other)
  Sender: FDA-Public Use
  Company Number: US-009507513-1312USA005250

PATIENT
  Sex: Female
  Weight: 70.3 kg

DRUGS (5)
  1. FOSAMAX [Suspect]
     Active Substance: ALENDRONATE SODIUM
     Dosage: 70 MG, QW
     Route: 048
     Dates: start: 20030618, end: 20030914
  2. VITAMINS (UNSPECIFIED) [Concomitant]
     Active Substance: VITAMINS
     Dosage: UNK
     Dates: start: 1985
  3. CALCIUM (UNSPECIFIED) [Concomitant]
     Active Substance: CALCIUM
     Dosage: 1200 MG, QD
     Dates: start: 1990
  4. FOSAMAX [Suspect]
     Active Substance: ALENDRONATE SODIUM
     Indication: OSTEOPOROSIS PROPHYLAXIS
     Dosage: 10 MG, QD
     Route: 048
     Dates: start: 20020204, end: 201102
  5. FOSAMAX [Suspect]
     Active Substance: ALENDRONATE SODIUM
     Indication: OSTEOPOROSIS
     Dosage: 70 MG, QW
     Route: 048
     Dates: start: 20011213, end: 20020204

REACTIONS (34)
  - Glaucoma [Not Recovered/Not Resolved]
  - Vascular occlusion [Unknown]
  - Diverticulitis [Unknown]
  - Fall [Unknown]
  - Cataract [Unknown]
  - Peroneal nerve palsy [Recovering/Resolving]
  - Radius fracture [Unknown]
  - Diabetes mellitus [Unknown]
  - Pain in extremity [Unknown]
  - Gastrooesophageal reflux disease [Not Recovered/Not Resolved]
  - Haemorrhagic anaemia [Unknown]
  - Paraesthesia [Unknown]
  - Bundle branch block left [Not Recovered/Not Resolved]
  - Anxiety [Unknown]
  - Polymyalgia rheumatica [Not Recovered/Not Resolved]
  - Fall [Unknown]
  - Pain in extremity [Unknown]
  - Hyperlipidaemia [Unknown]
  - Hypertension [Unknown]
  - Restless legs syndrome [Unknown]
  - Arthritis [Unknown]
  - Laceration [Unknown]
  - Femur fracture [Unknown]
  - Intramedullary rod insertion [Unknown]
  - Femoral neck fracture [Unknown]
  - Nephrolithiasis [Unknown]
  - Depression [Unknown]
  - Contusion [Unknown]
  - Medical device removal [Unknown]
  - Peripheral vascular disorder [Not Recovered/Not Resolved]
  - Temporal arteritis [Unknown]
  - Hypertension [Recovered/Resolved]
  - Osteopenia [Unknown]
  - Vomiting [Unknown]

NARRATIVE: CASE EVENT DATE: 2004
